FAERS Safety Report 7570076-1 (Version None)
Quarter: 2011Q2

REPORT INFORMATION
  Report Type: 
  Country: None (occurrence: None)
  Receive Date: 20110624
  Receipt Date: 20110610
  Transmission Date: 20111010
  Serious: Yes (Other)
  Sender: FDA-Public Use
  Company Number: IN-RANBAXY-2011RR-44319

PATIENT
  Age: 14 Year
  Sex: Male

DRUGS (6)
  1. MYCOPHENOLATE MEFETIL [Suspect]
     Dosage: 2000 MG, UNK
  2. MYCOPHENOLATE MEFETIL [Suspect]
     Indication: IMMUNOSUPPRESSION
     Dosage: 500 MG, TID
  3. AMPICILLIN SODIUM/SULBACTAM SODIUM [Suspect]
     Indication: URINARY TRACT INFECTION
  4. MYCOPHENOLATE MEFETIL [Suspect]
     Dosage: 2250 MG, UNK
  5. PREDNISOLONE [Concomitant]
     Indication: IMMUNOSUPPRESSION
  6. TACROLIMUS [Concomitant]
     Indication: IMMUNOSUPPRESSION

REACTIONS (2)
  - DRUG INTERACTION [None]
  - DRUG LEVEL DECREASED [None]
